FAERS Safety Report 5599280-9 (Version None)
Quarter: 2008Q1

REPORT INFORMATION
  Report Type: 
  Country: None (occurrence: None)
  Receive Date: 20080117
  Receipt Date: 20080102
  Transmission Date: 20080703
  Serious: Yes (Hospitalization)
  Sender: FDA-Public Use
  Company Number: 2008000001

PATIENT
  Age: 67 Year
  Sex: Female

DRUGS (4)
  1. ERLOTINIB (ERLOTINIB HCI) (TABLET) (ERLOTINIB) [Suspect]
     Dosage: 150 MG, 1 IN 1 D, ORAL
     Route: 048
     Dates: start: 20071107, end: 20071211
  2. BEVACIZUMAB (INJECTION) [Suspect]
     Dosage: 1260, INTRAVENOUS
     Route: 042
     Dates: start: 20071107, end: 20071128
  3. BEVACIZUMAB (INJECTION) [Suspect]
  4. BEVACIZUMAB (INJECTION) [Suspect]

REACTIONS (2)
  - ARTERIAL THROMBOSIS LIMB [None]
  - HAEMOPTYSIS [None]
